FAERS Safety Report 24468299 (Version 1)
Quarter: 2024Q4

REPORT INFORMATION
  Report Type: Spontaneous
  Country: RS (occurrence: RS)
  Receive Date: 20241018
  Receipt Date: 20241018
  Transmission Date: 20250115
  Serious: Yes (Death, Other)
  Sender: RANBAXY
  Company Number: RS-SUN PHARMACEUTICAL INDUSTRIES LTD-2024R1-474169

PATIENT
  Sex: Female
  Weight: 1.279 kg

DRUGS (3)
  1. ASPIRIN [Suspect]
     Active Substance: ASPIRIN
     Indication: Thrombosis
     Dosage: UNK
     Route: 065
  2. WARFARIN [Suspect]
     Active Substance: WARFARIN
     Indication: Coagulopathy
     Dosage: UNK
     Route: 065
  3. DIPYRIDAMOLE [Suspect]
     Active Substance: DIPYRIDAMOLE
     Indication: Coagulopathy
     Dosage: UNK
     Route: 065

REACTIONS (1)
  - Drug ineffective [Fatal]
